FAERS Safety Report 4544289-7 (Version None)
Quarter: 2004Q4

REPORT INFORMATION
  Report Type: 
  Country: None (occurrence: None)
  Receive Date: 20041230
  Receipt Date: 20041217
  Transmission Date: 20050328
  Serious: Yes (Other)
  Sender: FDA-Public Use
  Company Number: EM2004-0634

PATIENT
  Age: 24 Year
  Sex: Female

DRUGS (3)
  1. TOBI [Suspect]
     Indication: PSEUDOMONAS INFECTION
     Dosage: SEE IMAGE
     Dates: end: 20040805
  2. TOBI [Suspect]
     Indication: PSEUDOMONAS INFECTION
     Dosage: SEE IMAGE
     Dates: start: 20040902, end: 20041108
  3. CIPROFLOXACIN [Concomitant]

REACTIONS (5)
  - HAEMORRHAGE [None]
  - LARYNGITIS [None]
  - PHARYNGITIS [None]
  - VOCAL CORD INFLAMMATION [None]
  - VOCAL CORD THICKENING [None]
